FAERS Safety Report 10964689 (Version 1)
Quarter: 2015Q1

REPORT INFORMATION
  Report Type: Spontaneous
  Country: US (occurrence: US)
  Receive Date: 20150329
  Receipt Date: 20150329
  Transmission Date: 20150721
  Serious: Yes (Other)
  Sender: FDA-Public Use
  Company Number: US-ALEXION PHARMACEUTICALS INC-A201500983

PATIENT

DRUGS (2)
  1. SOLIRIS [Suspect]
     Active Substance: ECULIZUMAB
     Indication: PAROXYSMAL NOCTURNAL HAEMOGLOBINURIA
     Dosage: UNK, Q2W
     Route: 042
     Dates: start: 200802
  2. SOLIRIS [Suspect]
     Active Substance: ECULIZUMAB
     Dosage: UNK, Q12D
     Route: 042
     Dates: start: 200908

REACTIONS (6)
  - Blood lactate dehydrogenase increased [Recovered/Resolved]
  - Inappropriate schedule of drug administration [Unknown]
  - Blood bilirubin increased [Unknown]
  - Complement factor abnormal [Not Recovered/Not Resolved]
  - Haemolysis [Unknown]
  - Reticulocyte count abnormal [Unknown]
